FAERS Safety Report 16762518 (Version 2)
Quarter: 2019Q4

REPORT INFORMATION
  Report Type: Spontaneous
  Country: GB (occurrence: GB)
  Receive Date: 20190831
  Receipt Date: 20191017
  Transmission Date: 20200122
  Serious: Yes (Other)
  Sender: FDA-Public Use
  Company Number: GB-MACLEODS PHARMACEUTICALS US LTD-MAC2019022770

PATIENT

DRUGS (4)
  1. QUETIAPINE 200 MG [Suspect]
     Active Substance: QUETIAPINE
     Indication: PSYCHOTIC DISORDER
     Dosage: 200 MILLIGRAM ON 24 A DAY (AT NIGHT) ONLY
     Route: 065
  2. QUETIAPINE 200 MG [Suspect]
     Active Substance: QUETIAPINE
     Dosage: 600 MILLIGRAM ON 600 MG (AT NIGHT)
     Route: 065
  3. QUETIAPINE 200 MG [Suspect]
     Active Substance: QUETIAPINE
     Dosage: UNK, PROGRESSIVELY INCREASED OVER 2 MONTHS
     Route: 065
  4. QUETIAPINE 200 MG [Suspect]
     Active Substance: QUETIAPINE
     Dosage: UNK, CONVERTED TO MODIFIED RELEASE FORM
     Route: 065

REACTIONS (1)
  - Retrograde ejaculation [Recovered/Resolved]
